FAERS Safety Report 19779172 (Version 2)
Quarter: 2021Q3

REPORT INFORMATION
  Report Type: Report from Study
  Country: JP (occurrence: JP)
  Receive Date: 20210902
  Receipt Date: 20210906
  Transmission Date: 20211014
  Serious: Yes (Hospitalization)
  Sender: FDA-Public Use
  Company Number: JP-CELGENEUS-JPN-20200800234

PATIENT
  Age: 77 Year
  Sex: Male
  Weight: 79 kg

DRUGS (48)
  1. AZACITIDINE. [Suspect]
     Active Substance: AZACITIDINE
     Indication: ACUTE MYELOID LEUKAEMIA
     Dosage: 142 MILLIGRAM
     Route: 058
     Dates: start: 20200420, end: 20200428
  2. ROSUVASTATIN CALCIUM. [Concomitant]
     Active Substance: ROSUVASTATIN CALCIUM
     Indication: PRODUCT USED FOR UNKNOWN INDICATION
     Route: 065
  3. BISACODYL. [Concomitant]
     Active Substance: BISACODYL
     Indication: PRODUCT USED FOR UNKNOWN INDICATION
     Route: 065
     Dates: start: 20200424, end: 20200425
  4. TAZOBACTAM SODIUM AND PIPERACILLIN SODIUM [Concomitant]
     Active Substance: PIPERACILLIN SODIUM\TAZOBACTAM SODIUM
     Indication: PRODUCT USED FOR UNKNOWN INDICATION
     Route: 065
     Dates: start: 20200510, end: 20200716
  5. FUROSEMIDE. [Concomitant]
     Active Substance: FUROSEMIDE
     Indication: PRODUCT USED FOR UNKNOWN INDICATION
     Route: 065
     Dates: start: 20200517
  6. BEPOTASTINE BESILATE [Concomitant]
     Active Substance: BEPOTASTINE BESYLATE
     Indication: PRODUCT USED FOR UNKNOWN INDICATION
     Route: 065
     Dates: start: 20200522, end: 20200601
  7. HEPARINOID [Concomitant]
     Active Substance: CHONDROITIN SULFATE (BOVINE)
     Indication: PRODUCT USED FOR UNKNOWN INDICATION
     Route: 065
     Dates: start: 20200522, end: 20200604
  8. LIDOCAINE W/EPINEPHRINE [Concomitant]
     Active Substance: EPINEPHRINE\LIDOCAINE
     Indication: PRODUCT USED FOR UNKNOWN INDICATION
     Route: 065
     Dates: start: 20200511, end: 20200511
  9. RUPATADINE FUMARATE [Concomitant]
     Active Substance: RUPATADINE FUMARATE
     Indication: PRODUCT USED FOR UNKNOWN INDICATION
     Route: 065
     Dates: start: 20200522, end: 20200601
  10. ENTEROCOCCUS FAECIUM LACTOBACILLUS SUBTILIS [Concomitant]
     Indication: PRODUCT USED FOR UNKNOWN INDICATION
     Route: 065
     Dates: start: 20200728
  11. LEVOFLOXACIN HEMIHYDRATE [Concomitant]
     Active Substance: LEVOFLOXACIN
     Indication: INFECTION
     Route: 065
     Dates: start: 20200803
  12. AZACITIDINE. [Suspect]
     Active Substance: AZACITIDINE
     Dosage: 136 MILLIGRAM
     Route: 058
     Dates: start: 20200803, end: 20200811
  13. AZACITIDINE. [Suspect]
     Active Substance: AZACITIDINE
     Dosage: 135 MILLIGRAM
     Route: 058
     Dates: start: 20210326, end: 20210419
  14. AG?120 [Suspect]
     Active Substance: IVOSIDENIB
     Dosage: 25 MILLIGRAM
     Route: 048
     Dates: start: 20200428, end: 20200521
  15. AG?120 [Suspect]
     Active Substance: IVOSIDENIB
     Route: 048
     Dates: start: 20200820
  16. VIDARABINE [Concomitant]
     Active Substance: VIDARABINE
     Indication: PRODUCT USED FOR UNKNOWN INDICATION
     Route: 065
     Dates: start: 20200501, end: 20200517
  17. MAGNESIUM OXIDE. [Concomitant]
     Active Substance: MAGNESIUM OXIDE
     Indication: PRODUCT USED FOR UNKNOWN INDICATION
     Route: 065
     Dates: start: 20200506
  18. GENTAMICIN SULFATE. [Concomitant]
     Active Substance: GENTAMICIN SULFATE
     Indication: PRODUCT USED FOR UNKNOWN INDICATION
     Route: 065
     Dates: start: 20200511, end: 20200622
  19. MOMETASONE FUROATE. [Concomitant]
     Active Substance: MOMETASONE FUROATE
     Indication: PRODUCT USED FOR UNKNOWN INDICATION
     Route: 065
     Dates: start: 20200522, end: 20200604
  20. SENNOSIDE A+B CALCIUM [Concomitant]
     Active Substance: SENNOSIDES A AND B
     Indication: PRODUCT USED FOR UNKNOWN INDICATION
     Route: 065
     Dates: start: 20200703
  21. AZACITIDINE. [Suspect]
     Active Substance: AZACITIDINE
     Dosage: 138 MILLIGRAM
     Route: 058
     Dates: start: 20210118, end: 20210124
  22. VORICONAZOLE. [Concomitant]
     Active Substance: VORICONAZOLE
     Route: 065
     Dates: start: 20200727, end: 20200820
  23. DOXAZOSIN MESILATE [Concomitant]
     Active Substance: DOXAZOSIN MESYLATE
     Indication: PRODUCT USED FOR UNKNOWN INDICATION
     Route: 065
     Dates: end: 20200619
  24. PIRENOXINE [Concomitant]
     Active Substance: PIRENOXINE
     Indication: PRODUCT USED FOR UNKNOWN INDICATION
     Route: 065
  25. AZACITIDINE. [Suspect]
     Active Substance: AZACITIDINE
     Dosage: 133 MILLIGRAM
     Route: 058
     Dates: start: 20200908, end: 20200916
  26. AZACITIDINE. [Suspect]
     Active Substance: AZACITIDINE
     Dosage: 133 MILLIGRAM
     Route: 058
     Dates: start: 20210511, end: 20210517
  27. AG?120 [Suspect]
     Active Substance: IVOSIDENIB
     Indication: ACUTE MYELOID LEUKAEMIA
     Dosage: 500 MILLIGRAM
     Route: 048
     Dates: start: 20200420, end: 20200423
  28. VORICONAZOLE. [Concomitant]
     Active Substance: VORICONAZOLE
     Indication: PRODUCT USED FOR UNKNOWN INDICATION
     Route: 065
     Dates: start: 20200708, end: 20200725
  29. FEBUXOSTAT. [Concomitant]
     Active Substance: FEBUXOSTAT
     Indication: PRODUCT USED FOR UNKNOWN INDICATION
     Route: 065
     Dates: end: 20200619
  30. METOCLOPRAMIDE. [Concomitant]
     Active Substance: METOCLOPRAMIDE
     Indication: PRODUCT USED FOR UNKNOWN INDICATION
     Route: 065
     Dates: start: 20200503, end: 20200521
  31. AZACITIDINE. [Suspect]
     Active Substance: AZACITIDINE
     Dosage: 137 MILLIGRAM
     Route: 058
     Dates: start: 20200601, end: 20200609
  32. AZACITIDINE. [Suspect]
     Active Substance: AZACITIDINE
     Dosage: 133 MILLIGRAM
     Route: 058
     Dates: start: 20210608, end: 20210714
  33. VONOPRAZAN FUMARATE [Concomitant]
     Active Substance: VONOPRAZAN FUMARATE
     Indication: PRODUCT USED FOR UNKNOWN INDICATION
     Route: 065
  34. ESZOPICLONE. [Concomitant]
     Active Substance: ESZOPICLONE
     Indication: PRODUCT USED FOR UNKNOWN INDICATION
     Route: 065
     Dates: start: 20200429
  35. OLOPATADINE HYDROCHLORIDE. [Concomitant]
     Active Substance: OLOPATADINE HYDROCHLORIDE
     Indication: PRODUCT USED FOR UNKNOWN INDICATION
     Route: 065
     Dates: start: 20200508, end: 20200522
  36. ACETAMINOPHEN. [Concomitant]
     Active Substance: ACETAMINOPHEN
     Indication: PRODUCT USED FOR UNKNOWN INDICATION
     Route: 065
     Dates: start: 20200510
  37. AZACITIDINE. [Suspect]
     Active Substance: AZACITIDINE
     Dosage: 136 MILLIGRAM
     Route: 058
     Dates: start: 20201221, end: 20201227
  38. AZACITIDINE. [Suspect]
     Active Substance: AZACITIDINE
     Dosage: 135 MILLIGRAM
     Route: 058
     Dates: start: 20210326, end: 20210419
  39. AG?120 [Suspect]
     Active Substance: IVOSIDENIB
     Route: 048
     Dates: start: 20200808, end: 20200811
  40. NIFEDIPINE. [Concomitant]
     Active Substance: NIFEDIPINE
     Indication: PRODUCT USED FOR UNKNOWN INDICATION
     Route: 065
  41. KN NO. 1 [Concomitant]
     Indication: PRODUCT USED FOR UNKNOWN INDICATION
     Route: 065
     Dates: start: 20200423, end: 20200508
  42. OXYGEN. [Concomitant]
     Active Substance: OXYGEN
     Indication: INFECTION
     Route: 065
     Dates: start: 20200804
  43. AZACITIDINE. [Suspect]
     Active Substance: AZACITIDINE
     Dosage: 134 MILLIGRAM
     Route: 058
     Dates: start: 20200629, end: 20200707
  44. AZACITIDINE. [Suspect]
     Active Substance: AZACITIDINE
     Dosage: 134 MILLIGRAM
     Route: 058
     Dates: start: 20201124, end: 20201130
  45. AZACITIDINE. [Suspect]
     Active Substance: AZACITIDINE
     Dosage: 138 MILLIGRAM
     Route: 058
     Dates: start: 20210216, end: 20210222
  46. AG?120 [Suspect]
     Active Substance: IVOSIDENIB
     Route: 048
     Dates: start: 20200527, end: 20200804
  47. CEFEPIME DIHYDROCHLORIDE [Concomitant]
     Active Substance: CEFEPIME HYDROCHLORIDE
     Indication: PRODUCT USED FOR UNKNOWN INDICATION
     Route: 065
     Dates: start: 20200503, end: 20200508
  48. CLOSTRIDIUM BUTYRICUM [Concomitant]
     Active Substance: CLOSTRIDIUM BUTYRICUM SPORES STRAIN M-55
     Indication: PRODUCT USED FOR UNKNOWN INDICATION
     Route: 065
     Dates: start: 20200728

REACTIONS (3)
  - Differentiation syndrome [Recovered/Resolved]
  - Electrocardiogram QT prolonged [Recovered/Resolved]
  - Febrile neutropenia [Recovered/Resolved]

NARRATIVE: CASE EVENT DATE: 20200725
